FAERS Safety Report 7415336-X (Version None)
Quarter: 2011Q2

REPORT INFORMATION
  Report Type: 
  Country: None (occurrence: None)
  Receive Date: 20110414
  Receipt Date: 20110404
  Transmission Date: 20111010
  Serious: Yes (Hospitalization)
  Sender: FDA-Public Use
  Company Number: A0898732A

PATIENT
  Age: 47 Year
  Sex: Male

DRUGS (1)
  1. ELTROMBOPAG [Suspect]
     Dosage: 75MG PER DAY
     Route: 048
     Dates: start: 20101116, end: 20101122

REACTIONS (1)
  - RETINAL ARTERY OCCLUSION [None]
